FAERS Safety Report 4536998-0 (Version None)
Quarter: 2004Q4

REPORT INFORMATION
  Report Type: 
  Country: None (occurrence: None)
  Receive Date: 20041220
  Receipt Date: 20041214
  Transmission Date: 20050328
  Serious: Yes (Life-Threatening, Hospitalization)
  Sender: FDA-Public Use
  Company Number: 2004-123324-NL

PATIENT
  Age: 68 Year
  Sex: Female

DRUGS (6)
  1. MIRTAZAPINE [Suspect]
     Indication: DEPRESSION
     Dosage: 45 MG ORAL
     Route: 048
     Dates: start: 20030201, end: 20040902
  2. ARIPIPRAZOLE [Suspect]
     Indication: BIPOLAR I DISORDER
     Dosage: 15 MG ORAL
     Route: 048
     Dates: start: 20040701, end: 20040907
  3. BENDROFLUAZIDE [Concomitant]
  4. DIAZEPAM [Concomitant]
  5. ESOMEPRAZOLE [Concomitant]
  6. LOPERAMIDE HCL [Concomitant]

REACTIONS (5)
  - BONE MARROW DEPRESSION [None]
  - HAEMOGLOBIN DECREASED [None]
  - NEUTROPHIL COUNT DECREASED [None]
  - PLATELET COUNT DECREASED [None]
  - WHITE BLOOD CELL COUNT DECREASED [None]
